FAERS Safety Report 12250147 (Version 3)
Quarter: 2016Q2

REPORT INFORMATION
  Report Type: Report from Study
  Country: US (occurrence: US)
  Receive Date: 20160408
  Receipt Date: 20160628
  Transmission Date: 20160815
  Serious: Yes (Death, Hospitalization, Other)
  Sender: FDA-Public Use
  Company Number: US-JNJFOC-20160224673

PATIENT
  Age: 87 Year
  Sex: Male

DRUGS (19)
  1. MOMETASONE FUROATE. [Concomitant]
     Active Substance: MOMETASONE FUROATE
     Route: 055
  2. FOLIC ACID. [Concomitant]
     Active Substance: FOLIC ACID
  3. MILK OF MAGNESIA [Concomitant]
     Active Substance: MAGNESIUM HYDROXIDE
     Dosage: 400 MG /5 ML
  4. ALBUTEROL. [Concomitant]
     Active Substance: ALBUTEROL
     Dosage: 1 VIAL
     Route: 055
  5. COLACE [Concomitant]
     Active Substance: DOCUSATE SODIUM
  6. LASIX [Concomitant]
     Active Substance: FUROSEMIDE
  7. METOPROLOL. [Concomitant]
     Active Substance: METOPROLOL
  8. MORNIFLUMATE [Concomitant]
     Active Substance: MORNIFLUMATE
  9. LUTEIN [Concomitant]
     Active Substance: LUTEIN
  10. SIMVASTATIN. [Concomitant]
     Active Substance: SIMVASTATIN
  11. IMBRUVICA [Suspect]
     Active Substance: IBRUTINIB
     Indication: CHRONIC LYMPHOCYTIC LEUKAEMIA
     Route: 048
     Dates: start: 20160107
  12. IMBRUVICA [Suspect]
     Active Substance: IBRUTINIB
     Indication: CHRONIC LYMPHOCYTIC LEUKAEMIA
     Route: 048
     Dates: start: 201505
  13. CEFTIN [Concomitant]
     Active Substance: CEFUROXIME AXETIL
  14. HYDROCODONE BITARTRATE W/PARACETAMOL [Concomitant]
     Active Substance: ACETAMINOPHEN\HYDROCODONE BITARTRATE
     Dosage: 1
  15. VITAMIN D3 [Concomitant]
     Active Substance: CHOLECALCIFEROL
     Dosage: 50000 UNITS
  16. PLAVIX [Concomitant]
     Active Substance: CLOPIDOGREL BISULFATE
  17. ALLOPURINOL. [Concomitant]
     Active Substance: ALLOPURINOL
  18. ACETAMINOPHEN. [Concomitant]
     Active Substance: ACETAMINOPHEN
     Dosage: 4 HOURS
  19. DITROPAN [Concomitant]
     Active Substance: OXYBUTYNIN CHLORIDE

REACTIONS (6)
  - Fall [Unknown]
  - Drug ineffective [Unknown]
  - Pneumonia [Unknown]
  - Death [Fatal]
  - Pelvic fracture [Unknown]
  - Dysphagia [Unknown]

NARRATIVE: CASE EVENT DATE: 2015
